FAERS Safety Report 10159173 (Version 1)
Quarter: 2014Q2

REPORT INFORMATION
  Report Type: Spontaneous
  Country: US (occurrence: None)
  Receive Date: 20140507
  Receipt Date: 20140507
  Transmission Date: 20141212
  Serious: Yes (Hospitalization)
  Sender: FDA-Public Use
  Company Number: None

PATIENT
  Age: 61 Year
  Sex: Female
  Weight: 92.08 kg

DRUGS (30)
  1. VELCADE [Suspect]
     Indication: PLASMA CELL MYELOMA
     Dosage: 2.48 MG 1X EVERY 4 DAYS INTRAVENOUS?
     Route: 042
     Dates: start: 20140415, end: 20140425
  2. DECADRON [Suspect]
     Indication: PLASMA CELL MYELOMA
     Dosage: 2.5 D1, 2, 4, 5, 8, 9. 11. 12 ORAL
     Route: 048
     Dates: start: 20140415, end: 20140426
  3. ACYCLOVIR [Concomitant]
  4. ALPRAZOLAM (XANAX) 1MG/3X PER DAY [Concomitant]
  5. AMILORIDE [Concomitant]
  6. AMLODIPINE [Concomitant]
  7. ASPIRIN [Concomitant]
  8. CALCIUM [Concomitant]
  9. CHLORPROMAZINE [Concomitant]
  10. CLONAZEPAM [Concomitant]
  11. COCOA BUTTER TOPICAL LOTION [Concomitant]
  12. DEXAMETHASONE [Concomitant]
  13. DIVALPROEX DR (DEPAKOTE) [Concomitant]
  14. ERGOCALCIFEROL, VITAMIN D2 [Concomitant]
  15. FISH OIL [Concomitant]
  16. FOLIC ACID [Concomitant]
  17. LAMOTRIGINE [Concomitant]
  18. LATANOPROST (XALATAN) [Concomitant]
  19. LEVOTHYROXINE (LEVOXYL) [Concomitant]
  20. LIDOCAINE-PRILOCAINE (EMLA) [Concomitant]
  21. MODAFINIL [Concomitant]
  22. MULTIVITAMIN TAB [Concomitant]
  23. NORTRIPTYLINE (PAMELOR) [Concomitant]
  24. OMEPRAZOLE [Concomitant]
  25. PROCHLORPERAZINE [Concomitant]
  26. SIMVASTATIN [Concomitant]
  27. SUMATRIPTAN (IMITREX) [Concomitant]
  28. TIMOLOL 0.5 % OPTHALMIC DROPS [Concomitant]
  29. VITAMIN B-COMPLEX [Concomitant]
  30. ZIPRASIDONE [Concomitant]

REACTIONS (9)
  - Malaise [None]
  - Somnolence [None]
  - Anaemia [None]
  - Thrombocytopenia [None]
  - Asthenia [None]
  - Cardiac failure congestive [None]
  - Diastolic dysfunction [None]
  - Diarrhoea [None]
  - Left atrial dilatation [None]
